FAERS Safety Report 24146090 (Version 1)
Quarter: 2024Q3

REPORT INFORMATION
  Report Type: Report from Study
  Country: CA (occurrence: CA)
  Receive Date: 20240729
  Receipt Date: 20240729
  Transmission Date: 20241016
  Serious: Yes (Other)
  Sender: ROCHE
  Company Number: CA-002147023-NVSC2023CA052360

PATIENT
  Age: 70 Year
  Sex: Female

DRUGS (2)
  1. XOLAIR [Suspect]
     Active Substance: OMALIZUMAB
     Indication: Chronic spontaneous urticaria
     Dosage: 300 MG, EVERY 4 WEEKS
     Route: 058
     Dates: start: 20230303
  2. XOLAIR [Suspect]
     Active Substance: OMALIZUMAB
     Dosage: 300 MG, EVERY 4 WEEKS
     Route: 058
     Dates: start: 2023

REACTIONS (12)
  - Lower respiratory tract infection [Unknown]
  - Throat tightness [Recovered/Resolved]
  - Anxiety [Unknown]
  - Skin irritation [Unknown]
  - Myalgia [Recovered/Resolved]
  - Urticaria [Unknown]
  - Sinusitis [Recovering/Resolving]
  - Sinus pain [Recovering/Resolving]
  - Paranasal sinus discomfort [Recovering/Resolving]
  - Ear congestion [Recovering/Resolving]
  - Rash [Unknown]
  - Anaphylactic reaction [Unknown]

NARRATIVE: CASE EVENT DATE: 20230303
